FAERS Safety Report 7637106-X (Version None)
Quarter: 2011Q3

REPORT INFORMATION
  Report Type: 
  Country: None (occurrence: None)
  Receive Date: 20110722
  Receipt Date: 20110722
  Transmission Date: 20111222
  Serious: Yes (Other)
  Sender: FDA-Public Use
  Company Number: None

PATIENT
  Age: 76 Year
  Sex: Female
  Weight: 51.7101 kg

DRUGS (5)
  1. INSULIN THERAPY [Concomitant]
  2. ALTACE [Concomitant]
  3. SPIRIVA [Suspect]
     Indication: CHRONIC OBSTRUCTIVE PULMONARY DISEASE
     Dosage: 18MCG 1XDAILY INHALED
     Route: 055
     Dates: start: 20100519, end: 20110709
  4. CRESTOR [Concomitant]
  5. TOPROL-XL [Concomitant]

REACTIONS (1)
  - MEMORY IMPAIRMENT [None]
